FAERS Safety Report 7236719-7 (Version None)
Quarter: 2011Q1

REPORT INFORMATION
  Report Type: 
  Country: None (occurrence: None)
  Receive Date: 20110120
  Receipt Date: 20110112
  Transmission Date: 20110831
  Serious: Yes (Other)
  Sender: FDA-Public Use
  Company Number: JP-AMGEN-JPNCT2011003489

PATIENT

DRUGS (12)
  1. FLUOROURACIL [Suspect]
     Indication: COLORECTAL CANCER
     Route: 040
     Dates: start: 20100929
  2. PROTECADIN [Concomitant]
     Route: 048
  3. LOXOMARIN [Concomitant]
     Route: 048
  4. DEPAS [Concomitant]
     Route: 048
  5. CALCIUM LEVOFOLINATE [Suspect]
     Indication: COLORECTAL CANCER
     Route: 041
     Dates: start: 20100929
  6. ALOXI [Concomitant]
     Route: 042
  7. JUZENTAIHOTO [Concomitant]
     Route: 048
  8. PANITUMUMAB [Suspect]
     Indication: COLORECTAL CANCER
     Dosage: 6 MG/KG, Q2WK
     Route: 041
     Dates: start: 20100929
  9. IRINOTECAN HYDROCHLORIDE [Suspect]
     Indication: COLORECTAL CANCER
     Route: 041
     Dates: start: 20100929
  10. ORGADRONE [Concomitant]
     Route: 042
  11. FLUOROURACIL [Suspect]
     Route: 041
     Dates: start: 20100929
  12. GOODMIN [Concomitant]
     Route: 048

REACTIONS (4)
  - DERMATITIS ACNEIFORM [None]
  - DEHYDRATION [None]
  - STOMATITIS [None]
  - DECREASED APPETITE [None]
